FAERS Safety Report 20444725 (Version 1)
Quarter: 2022Q1

REPORT INFORMATION
  Report Type: Spontaneous
  Country: US (occurrence: None)
  Receive Date: 20220207
  Receipt Date: 20220207
  Transmission Date: 20220423
  Serious: Yes (Disabling)
  Sender: FDA-Public Use
  Company Number: None

PATIENT
  Age: 8 Year
  Sex: Male
  Weight: 26.1 kg

DRUGS (4)
  1. SINGULAIR [Suspect]
     Active Substance: MONTELUKAST SODIUM
     Indication: Hypersensitivity
     Dosage: FREQUENCY : AT BEDTIME;?
     Route: 048
     Dates: end: 20220201
  2. ZYRTEC [Concomitant]
     Active Substance: CETIRIZINE HYDROCHLORIDE
  3. FLONASE [Concomitant]
     Active Substance: FLUTICASONE PROPIONATE
  4. PULMICORT TURBUHALER [Concomitant]
     Active Substance: BUDESONIDE

REACTIONS (8)
  - Intrusive thoughts [None]
  - Arthralgia [None]
  - Pallor [None]
  - Tremor [None]
  - Nausea [None]
  - Vomiting [None]
  - Anxiety [None]
  - Obsessive-compulsive disorder [None]

NARRATIVE: CASE EVENT DATE: 20220207
